FAERS Safety Report 4799728-3 (Version None)
Quarter: 2005Q4

REPORT INFORMATION
  Report Type: 
  Country: None (occurrence: None)
  Receive Date: 20051011
  Receipt Date: 20051011
  Transmission Date: 20060501
  Serious: Yes (Hospitalization)
  Sender: FDA-Public Use
  Company Number: None

PATIENT
  Sex: Female
  Weight: 63 kg

DRUGS (1)
  1. FOSINOPRIL 80 MG Q DAY [Suspect]
     Dosage: ON } 1 YEAR PRIOR TO ADE

REACTIONS (1)
  - ANGIONEUROTIC OEDEMA [None]
